FAERS Safety Report 17035247 (Version 4)
Quarter: 2020Q1

REPORT INFORMATION
  Report Type: Spontaneous
  Country: GB (occurrence: GB)
  Receive Date: 20191115
  Receipt Date: 20200103
  Transmission Date: 20200409
  Serious: No
  Sender: FDA-Public Use
  Company Number: GB-BEH-2019109475

PATIENT
  Age: 8 Year
  Sex: Female

DRUGS (5)
  1. HIZENTRA [Suspect]
     Active Substance: HUMAN IMMUNOGLOBULIN G
     Dosage: 2 GRAM
     Route: 058
     Dates: start: 20191013, end: 20191020
  2. HIZENTRA [Suspect]
     Active Substance: HUMAN IMMUNOGLOBULIN G
     Dosage: 5 GRAM, QW
     Route: 058
     Dates: start: 20191013, end: 20191020
  3. HIZENTRA [Suspect]
     Active Substance: HUMAN IMMUNOGLOBULIN G
     Indication: HYPER IGE SYNDROME
     Dosage: UNK
     Route: 065
     Dates: start: 2017
  4. HIZENTRA [Suspect]
     Active Substance: HUMAN IMMUNOGLOBULIN G
     Dosage: 1 GRAM
     Route: 058
     Dates: start: 20191013, end: 20191020
  5. FLUCONAZOLE. [Concomitant]
     Active Substance: FLUCONAZOLE
     Route: 065

REACTIONS (7)
  - No adverse event [Unknown]
  - Rash erythematous [Recovered/Resolved]
  - Pain of skin [Recovered/Resolved]
  - Infusion site erythema [Recovered/Resolved]
  - Product use in unapproved indication [Unknown]
  - Suspected product quality issue [Recovered/Resolved]
  - Skin reaction [Recovered/Resolved]

NARRATIVE: CASE EVENT DATE: 20191013
